FAERS Safety Report 8930411 (Version 2)
Quarter: 2012Q4

REPORT INFORMATION
  Report Type: 
  Country: US (occurrence: US)
  Receive Date: 20121128
  Receipt Date: 20121203
  Transmission Date: 20130627
  Serious: Yes (Death, Other)
  Sender: FDA-Public Use
  Company Number: US-ROCHE-1159977

PATIENT
  Age: 65 Year
  Sex: Male

DRUGS (2)
  1. ALTEPLASE [Suspect]
     Indication: PULMONARY EMBOLISM
     Route: 042
  2. HEPARIN [Suspect]
     Indication: PULMONARY EMBOLISM
     Route: 042

REACTIONS (4)
  - Cardiac arrest [Fatal]
  - Pulseless electrical activity [Fatal]
  - Shock [Unknown]
  - Pulmonary embolism [Unknown]
